FAERS Safety Report 6399027-2 (Version None)
Quarter: 2009Q4

REPORT INFORMATION
  Report Type: 
  Country: None (occurrence: None)
  Receive Date: 20091008
  Receipt Date: 20091008
  Transmission Date: 20100525
  Serious: Yes (Hospitalization)
  Sender: FDA-Public Use
  Company Number: None

PATIENT
  Age: 65 Year
  Sex: Female
  Weight: 72.5755 kg

DRUGS (2)
  1. LEVAQUIN [Suspect]
     Indication: SINUSITIS
     Dates: start: 20071226, end: 20080110
  2. LEVAQUIN [Suspect]
     Indication: SINUSITIS
     Dates: start: 20090115, end: 20090125

REACTIONS (5)
  - CONNECTIVE TISSUE DISORDER [None]
  - INTERVERTEBRAL DISCITIS [None]
  - MENISCUS LESION [None]
  - TENDON DISORDER [None]
  - TENDON RUPTURE [None]
